FAERS Safety Report 7647640-4 (Version None)
Quarter: 2011Q3

REPORT INFORMATION
  Report Type: 
  Country: None (occurrence: None)
  Receive Date: 20110801
  Receipt Date: 20110801
  Transmission Date: 20111222
  Serious: Yes (Hospitalization)
  Sender: FDA-Public Use
  Company Number: None

PATIENT
  Age: 92 Year
  Sex: Female
  Weight: 99 kg

DRUGS (15)
  1. LISINOPRIL [Concomitant]
     Route: 048
  2. OXYCODONE HCL [Concomitant]
     Route: 048
  3. ISOSORBIDE MONONITRATE [Concomitant]
     Route: 048
  4. CARVEDILOL [Concomitant]
     Route: 048
  5. SIMVASTATIN [Concomitant]
     Route: 048
  6. LBUTEROL INHALER 2 PUFFS [Concomitant]
     Route: 048
  7. LIDOCAINE TOPICAL PATCH [Concomitant]
     Route: 061
  8. FUROSEMIDE [Concomitant]
     Route: 048
  9. METOLAZONE [Concomitant]
     Route: 048
  10. TEMAZEPAM [Concomitant]
     Route: 048
  11. WARFARIN [Concomitant]
     Route: 048
  12. DIGOXIN [Suspect]
     Indication: ATRIAL FIBRILLATION
     Dosage: 250 MCG
     Route: 048
  13. PANTOPRAZOLE SODIUM [Concomitant]
     Route: 048
  14. DARFENACIN [Concomitant]
     Route: 048
  15. MULTI-VITAMIN [Concomitant]
     Route: 048

REACTIONS (4)
  - TOXICITY TO VARIOUS AGENTS [None]
  - DEHYDRATION [None]
  - RENAL FAILURE ACUTE [None]
  - MENTAL STATUS CHANGES [None]
